FAERS Safety Report 4661341-6 (Version None)
Quarter: 2005Q2

REPORT INFORMATION
  Report Type: 
  Country: None (occurrence: None)
  Receive Date: 20050324
  Receipt Date: 20040227
  Transmission Date: 20051028
  Serious: Yes (Other)
  Sender: FDA-Public Use
  Company Number: 2004-BP-01512BP

PATIENT
  Age: 43 Year
  Sex: Male

DRUGS (1)
  1. FLOMAX [Suspect]
     Indication: BENIGN PROSTATIC HYPERPLASIA
     Dosage: NR (0.4 MG), PO
     Route: 048
     Dates: end: 20040227

REACTIONS (1)
  - PRIAPISM [None]
